FAERS Safety Report 8775212 (Version 1)
Quarter: 2012Q4

REPORT INFORMATION
  Report Type: 
  Country: IT (occurrence: IT)
  Receive Date: 20120910
  Receipt Date: 20120910
  Transmission Date: 20130627
  Serious: Yes (Other)
  Sender: FDA-Public Use
  Company Number: IT-JHP PHARMACEUTICALS, LLC-JHP201200460

PATIENT
  Age: 23 Year
  Sex: Female

DRUGS (2)
  1. COLY-MYCIN M PARENTERAL [Suspect]
     Indication: INFECTIVE PULMONARY EXACERBATION OF CYSTIC FIBROSIS
     Dosage: 2 x 10^6 IU 3x/day
     Route: 042
  2. MEROPENEM [Concomitant]

REACTIONS (3)
  - Asthenia [Recovered/Resolved]
  - Fatigue [Recovered/Resolved]
  - Swollen tongue [Recovered/Resolved]
